FAERS Safety Report 11216339 (Version 2)
Quarter: 2015Q3

REPORT INFORMATION
  Report Type: Report from Study
  Country: BR (occurrence: BR)
  Receive Date: 20150624
  Receipt Date: 20150817
  Transmission Date: 20151125
  Serious: Yes (Hospitalization, Other)
  Sender: FDA-Public Use
  Company Number: BR-ABBVIE-15P-020-1414947-00

PATIENT
  Age: 62 Year
  Sex: Female
  Weight: 70 kg

DRUGS (5)
  1. RAMIPRIL. [Concomitant]
     Active Substance: RAMIPRIL
     Indication: HEART RATE IRREGULAR
     Route: 048
  2. DEPAKOTE ER [Suspect]
     Active Substance: DIVALPROEX SODIUM
     Indication: CEREBRAL ISCHAEMIA
     Route: 048
     Dates: start: 20100710, end: 20140416
  3. ELIQUIS [Concomitant]
     Active Substance: APIXABAN
     Indication: PULMONARY EMBOLISM
     Route: 048
  4. ELIQUIS [Concomitant]
     Active Substance: APIXABAN
     Indication: THROMBOSIS
  5. DEPAKOTE ER [Suspect]
     Active Substance: DIVALPROEX SODIUM
     Route: 048
     Dates: start: 20140516

REACTIONS (5)
  - Off label use [Unknown]
  - Seizure [Unknown]
  - Cardiac disorder [Recovered/Resolved]
  - Aortic valve replacement [Recovered/Resolved]
  - Lung disorder [Recovered/Resolved]

NARRATIVE: CASE EVENT DATE: 20100710
